FAERS Safety Report 6537236-X (Version None)
Quarter: 2010Q1

REPORT INFORMATION
  Report Type: 
  Country: None (occurrence: None)
  Receive Date: 20100114
  Receipt Date: 20091224
  Transmission Date: 20100710
  Serious: No
  Sender: FDA-Public Use
  Company Number: PT-ROCHE-677965

PATIENT
  Age: 40 Year
  Sex: Female

DRUGS (2)
  1. OSELTAMIVIR (API) [Suspect]
     Route: 048
     Dates: start: 20091017, end: 20091027
  2. ANTIDEPRESSANTS [Concomitant]

REACTIONS (2)
  - NO ADVERSE EVENT [None]
  - PREGNANCY [None]
